FAERS Safety Report 19158277 (Version 3)
Quarter: 2021Q4

REPORT INFORMATION
  Report Type: Report from Study
  Country: BR (occurrence: BR)
  Receive Date: 20210420
  Receipt Date: 20211125
  Transmission Date: 20220303
  Serious: Yes (Hospitalization)
  Sender: FDA-Public Use
  Company Number: BR-009507513-2102BRA007148

PATIENT
  Age: 72 Year
  Sex: Male
  Weight: 70.5 kg

DRUGS (22)
  1. ABRAXANE [Suspect]
     Active Substance: PACLITAXEL
     Indication: Non-small cell lung cancer stage IV
     Dosage: 100 MILLIGRAM/SQ. METER ON DAY 1, 8 AND 15
     Route: 042
     Dates: start: 20210112, end: 20210203
  2. ABRAXANE [Suspect]
     Active Substance: PACLITAXEL
     Dosage: 100 MILLIGRAM/SQ. METER ON DAY 1, 8 AND 15
     Route: 042
     Dates: start: 20210210, end: 20210210
  3. ABRAXANE [Suspect]
     Active Substance: PACLITAXEL
     Dosage: 100 MILLIGRAM/SQ. METER ON DAY 1, 8 AND 15
     Route: 042
     Dates: start: 20210303, end: 20210331
  4. ABRAXANE [Suspect]
     Active Substance: PACLITAXEL
     Dosage: 100 MILLIGRAM/SQ. METER?INDUCTION CYCLE 4 DAY 8
     Route: 042
     Dates: start: 20210408
  5. PEMBROLIZUMAB [Suspect]
     Active Substance: PEMBROLIZUMAB
     Indication: Non-small cell lung cancer stage IV
     Dosage: 200 MILLIGRAM ON DAY 1
     Route: 042
     Dates: start: 20210112, end: 20210112
  6. PEMBROLIZUMAB [Suspect]
     Active Substance: PEMBROLIZUMAB
     Dosage: 200 MILLIGRAM ON DAY 1
     Route: 042
     Dates: start: 20210203, end: 20210203
  7. PEMBROLIZUMAB [Suspect]
     Active Substance: PEMBROLIZUMAB
     Dosage: 200 MILLIGRAM ON DAY 1
     Route: 042
     Dates: start: 20210311, end: 20210331
  8. PEMBROLIZUMAB [Suspect]
     Active Substance: PEMBROLIZUMAB
     Dosage: 200 MILLIGRAM ON DAY 1
     Route: 042
     Dates: start: 2021, end: 20210929
  9. CARBOPLATIN [Suspect]
     Active Substance: CARBOPLATIN
     Indication: Non-small cell lung cancer stage IV
     Dosage: TITRATED TO AN AREA UNDER THE CURVE (AUC) 6 MG/ML/MIN, ON DAY 1 Q3W
     Route: 042
     Dates: start: 20210112, end: 20210112
  10. CARBOPLATIN [Suspect]
     Active Substance: CARBOPLATIN
     Dosage: TITRATED TO AN AREA UNDER THE CURVE (AUC) 6 MG/ML/MIN, ON DAY 1 Q3W
     Route: 042
     Dates: start: 20210203, end: 20210203
  11. CARBOPLATIN [Suspect]
     Active Substance: CARBOPLATIN
     Dosage: TITRATED TO AN AREA UNDER THE CURVE (AUC) 6 MG/ML/MIN, ON DAY 1 Q3W
     Route: 042
     Dates: start: 20210311, end: 20210331
  12. OLAPARIB [Suspect]
     Active Substance: OLAPARIB
     Indication: Non-small cell lung cancer
     Dosage: 1ST LINE
     Route: 048
     Dates: start: 20210513
  13. OLAPARIB [Suspect]
     Active Substance: OLAPARIB
     Dosage: MAINTENANCE CYCLE 7
     Route: 048
     Dates: start: 20210929
  14. HYDROCHLOROTHIAZIDE [Concomitant]
     Active Substance: HYDROCHLOROTHIAZIDE
     Indication: Hypertension
     Dosage: 25 MILLIGRAM, QD
     Route: 048
     Dates: start: 199001
  15. CAPTOPRIL [Concomitant]
     Active Substance: CAPTOPRIL
     Indication: Hypertension
     Dosage: 25 MILLIGRAM
     Route: 048
     Dates: start: 199001
  16. BROMAZEPAM [Concomitant]
     Active Substance: BROMAZEPAM
     Indication: Anxiety
     Dosage: 6 MILLIGRAM
     Route: 048
     Dates: start: 200001
  17. TIOTROPIUM BROMIDE [Concomitant]
     Active Substance: TIOTROPIUM BROMIDE
     Indication: Chronic obstructive pulmonary disease
     Dosage: 5 MICROGRAM
     Route: 055
     Dates: start: 202011
  18. FORMOTEROL FUMARATE [Concomitant]
     Active Substance: FORMOTEROL FUMARATE
     Indication: Chronic obstructive pulmonary disease
     Dosage: 24 MICROGRAM
     Route: 055
     Dates: start: 202011
  19. AKYNZEO [Concomitant]
     Active Substance: NETUPITANT\PALONOSETRON HYDROCHLORIDE
     Indication: Chemotherapy side effect prophylaxis
     Dosage: 1 CUMULATIVE DOSE
     Route: 048
     Dates: start: 20210203, end: 20210203
  20. DEXAMETHASONE [Concomitant]
     Active Substance: DEXAMETHASONE
     Indication: Chemotherapy side effect prophylaxis
     Route: 042
     Dates: start: 20210203
  21. ONDANSETRON [Concomitant]
     Active Substance: ONDANSETRON
     Indication: Chemotherapy side effect prophylaxis
     Dosage: 16 MILLIGRAM
     Route: 042
     Dates: start: 20210210
  22. FERROUS SULFATE [Concomitant]
     Active Substance: FERROUS SULFATE
     Indication: Anaemia
     Route: 065

REACTIONS (1)
  - Gastrointestinal haemorrhage [Recovered/Resolved]

NARRATIVE: CASE EVENT DATE: 20210215
